FAERS Safety Report 18115664 (Version 5)
Quarter: 2023Q4

REPORT INFORMATION
  Report Type: Spontaneous
  Country: US (occurrence: None)
  Receive Date: 20200805
  Receipt Date: 20231218
  Transmission Date: 20240109
  Serious: Yes (Death, Hospitalization, Other)
  Sender: FDA-Public Use
  Company Number: 2020SE95600

PATIENT
  Age: 22521 Day
  Sex: Male
  Weight: 140.6 kg

DRUGS (111)
  1. FARXIGA [Suspect]
     Active Substance: DAPAGLIFLOZIN PROPANEDIOL
     Indication: Diabetes mellitus
     Route: 048
     Dates: start: 20141201
  2. FARXIGA [Suspect]
     Active Substance: DAPAGLIFLOZIN PROPANEDIOL
     Indication: Type 2 diabetes mellitus
     Route: 048
     Dates: start: 20141201
  3. FARXIGA [Suspect]
     Active Substance: DAPAGLIFLOZIN PROPANEDIOL
     Indication: Weight decreased
     Route: 048
     Dates: start: 20141201
  4. FARXIGA [Suspect]
     Active Substance: DAPAGLIFLOZIN PROPANEDIOL
     Indication: Blood pressure decreased
     Route: 048
     Dates: start: 20141201
  5. FARXIGA [Suspect]
     Active Substance: DAPAGLIFLOZIN PROPANEDIOL
     Indication: Diabetes mellitus
     Route: 048
     Dates: start: 20140714, end: 20141201
  6. FARXIGA [Suspect]
     Active Substance: DAPAGLIFLOZIN PROPANEDIOL
     Indication: Type 2 diabetes mellitus
     Route: 048
     Dates: start: 20140714, end: 20141201
  7. FARXIGA [Suspect]
     Active Substance: DAPAGLIFLOZIN PROPANEDIOL
     Indication: Weight decreased
     Route: 048
     Dates: start: 20140714, end: 20141201
  8. FARXIGA [Suspect]
     Active Substance: DAPAGLIFLOZIN PROPANEDIOL
     Indication: Blood pressure decreased
     Route: 048
     Dates: start: 20140714, end: 20141201
  9. FARXIGA [Suspect]
     Active Substance: DAPAGLIFLOZIN PROPANEDIOL
     Indication: Diabetes mellitus
     Route: 048
     Dates: start: 20141029, end: 20141201
  10. FARXIGA [Suspect]
     Active Substance: DAPAGLIFLOZIN PROPANEDIOL
     Indication: Type 2 diabetes mellitus
     Route: 048
     Dates: start: 20141029, end: 20141201
  11. FARXIGA [Suspect]
     Active Substance: DAPAGLIFLOZIN PROPANEDIOL
     Indication: Weight decreased
     Route: 048
     Dates: start: 20141029, end: 20141201
  12. FARXIGA [Suspect]
     Active Substance: DAPAGLIFLOZIN PROPANEDIOL
     Indication: Blood pressure decreased
     Route: 048
     Dates: start: 20141029, end: 20141201
  13. FARXIGA [Suspect]
     Active Substance: DAPAGLIFLOZIN PROPANEDIOL
     Indication: Diabetes mellitus
     Route: 048
     Dates: start: 20140714, end: 20141012
  14. FARXIGA [Suspect]
     Active Substance: DAPAGLIFLOZIN PROPANEDIOL
     Indication: Type 2 diabetes mellitus
     Route: 048
     Dates: start: 20140714, end: 20141012
  15. FARXIGA [Suspect]
     Active Substance: DAPAGLIFLOZIN PROPANEDIOL
     Indication: Weight decreased
     Route: 048
     Dates: start: 20140714, end: 20141012
  16. FARXIGA [Suspect]
     Active Substance: DAPAGLIFLOZIN PROPANEDIOL
     Indication: Blood pressure decreased
     Route: 048
     Dates: start: 20140714, end: 20141012
  17. NEBIVOLOL [Concomitant]
     Active Substance: NEBIVOLOL
  18. AMLODIPINE [Concomitant]
     Active Substance: AMLODIPINE BESYLATE
  19. CLONIDINE [Concomitant]
     Active Substance: CLONIDINE
  20. CYCLOBENZAPRINE [Concomitant]
     Active Substance: CYCLOBENZAPRINE
  21. LEVOFLOXACIN [Concomitant]
     Active Substance: LEVOFLOXACIN
  22. MELOXICAM [Concomitant]
     Active Substance: MELOXICAM
  23. PANTOPRAZOLE [Concomitant]
     Active Substance: PANTOPRAZOLE
  24. SODIUM HYPOCHLORITE [Concomitant]
     Active Substance: SODIUM HYPOCHLORITE
  25. LEVEMIR [Concomitant]
     Active Substance: INSULIN DETEMIR
  26. HYDROCHLOROTHIAZIDE [Concomitant]
     Active Substance: HYDROCHLOROTHIAZIDE
  27. VANCOMYCIN [Concomitant]
     Active Substance: VANCOMYCIN
  28. PERCOCET [Concomitant]
     Active Substance: ACETAMINOPHEN\OXYCODONE HYDROCHLORIDE
  29. XANAX [Concomitant]
     Active Substance: ALPRAZOLAM
  30. LORCET [Concomitant]
     Active Substance: ACETAMINOPHEN\HYDROCODONE BITARTRATE
  31. METFORMIN [Concomitant]
     Active Substance: METFORMIN HYDROCHLORIDE
  32. POLYETHYLENE GLYCOL [Concomitant]
     Active Substance: POLYETHYLENE GLYCOL
  33. ASPIRIN [Concomitant]
     Active Substance: ASPIRIN
  34. MORPHINE [Concomitant]
     Active Substance: MORPHINE
  35. HEPARIN [Concomitant]
     Active Substance: HEPARIN SODIUM
  36. NALOXONE [Concomitant]
     Active Substance: NALOXONE
  37. ARGININE [Concomitant]
     Active Substance: ARGININE
  38. PROPOFOL [Concomitant]
     Active Substance: PROPOFOL
  39. MIDAZOLAM [Concomitant]
     Active Substance: MIDAZOLAM
  40. SUCCINYLCHOLINE [Concomitant]
     Active Substance: SUCCINYLCHOLINE
  41. DEXAMETHASONE [Concomitant]
     Active Substance: DEXAMETHASONE
  42. PHENYLEPHRINE [Concomitant]
     Active Substance: PHENYLEPHRINE HYDROCHLORIDE
  43. ESMOLOL [Concomitant]
     Active Substance: ESMOLOL HYDROCHLORIDE
  44. GLYCOPYRROLATE [Concomitant]
     Active Substance: GLYCOPYRROLATE
  45. NEOSTIGMINE [Concomitant]
     Active Substance: NEOSTIGMINE
  46. DAPTOMYCIN [Concomitant]
     Active Substance: DAPTOMYCIN
  47. DOXYCYCLINE [Concomitant]
     Active Substance: DOXYCYCLINE
  48. CLINDAMYCIN [Concomitant]
     Active Substance: CLINDAMYCIN
  49. LINEZOLID [Concomitant]
     Active Substance: LINEZOLID
  50. STREPTOMYCIN [Concomitant]
     Active Substance: STREPTOMYCIN SULFATE
  51. FLONASE [Concomitant]
     Active Substance: FLUTICASONE PROPIONATE
  52. SENNA [Concomitant]
     Active Substance: SENNA LEAF\SENNOSIDES\SENNOSIDES A AND B
  53. SIMETHICONE (DIMETHICONE) [Concomitant]
     Active Substance: DIMETHICONE
  54. SODIUM CHLORIDE [Concomitant]
     Active Substance: SODIUM CHLORIDE
  55. RANITIDINE HYDROCHLORIDE [Concomitant]
     Active Substance: RANITIDINE HYDROCHLORIDE
  56. NOVOLOG [Concomitant]
     Active Substance: INSULIN ASPART
  57. GABAPENTIN [Concomitant]
     Active Substance: GABAPENTIN
  58. GUAIFENESIN [Concomitant]
     Active Substance: GUAIFENESIN
  59. TOUJEO [Concomitant]
     Active Substance: INSULIN GLARGINE
  60. LORATADINE [Concomitant]
     Active Substance: LORATADINE
  61. NAPROXEN-DIPHENHYDRAMINE [Concomitant]
  62. VITAMIN A [Concomitant]
     Active Substance: VITAMIN A
  63. ZESTRIL [Concomitant]
     Active Substance: LISINOPRIL
  64. VITAMIN C [Concomitant]
     Active Substance: ASCORBIC ACID
  65. ZINC [Concomitant]
     Active Substance: PYRITHIONE ZINC\ZINC\ZINC CHLORIDE
  66. ALEVE [Concomitant]
     Active Substance: NAPROXEN SODIUM
  67. NEOMYCIN-POLYMYXIN [Concomitant]
  68. A-HYDROCORT [Concomitant]
     Active Substance: HYDROCORTISONE SODIUM SUCCINATE
  69. ZOFRAN [Concomitant]
     Active Substance: ONDANSETRON HYDROCHLORIDE
  70. FENTANYL [Concomitant]
     Active Substance: FENTANYL\FENTANYL CITRATE
  71. LACTATED RINGERS SOLUTION [Concomitant]
     Active Substance: CALCIUM CHLORIDE\POTASSIUM CHLORIDE\SODIUM CHLORIDE\SODIUM LACTATE
  72. TYLENOL [Concomitant]
     Active Substance: ACETAMINOPHEN
  73. ARGININE ASPARTATE/ARGININE GLUTAMATE [Concomitant]
  74. COLLAGENASE CLOSTRIDIUM HIST [Concomitant]
  75. DOCUSATE SODIUM [Concomitant]
     Active Substance: DOCUSATE SODIUM
  76. MAGNESIUM CITRATE [Concomitant]
     Active Substance: MAGNESIUM CITRATE
  77. GENTAMICIN [Concomitant]
     Active Substance: GENTAMICIN
  78. PIPERACILLIN [Concomitant]
     Active Substance: PIPERACILLIN
  79. TOBRAMYCIN [Concomitant]
     Active Substance: TOBRAMYCIN
  80. IMIPENEM [Concomitant]
     Active Substance: IMIPENEM
  81. AMMONIUM CHLORIDE\DEXTROMETHORPHAN\SODIUM CITRATE [Concomitant]
     Active Substance: AMMONIUM CHLORIDE\DEXTROMETHORPHAN\SODIUM CITRATE
     Route: 065
     Dates: start: 20111014
  82. FLEXERIL [Concomitant]
     Active Substance: CYCLOBENZAPRINE HYDROCHLORIDE
     Route: 065
     Dates: start: 20111014
  83. ZOVIRAX [Concomitant]
     Active Substance: ACYCLOVIR
     Route: 065
     Dates: start: 20111014
  84. PRILOSEC [Concomitant]
     Active Substance: OMEPRAZOLE MAGNESIUM
     Route: 065
     Dates: start: 20131002
  85. CARAFATE [Concomitant]
     Active Substance: SUCRALFATE
     Route: 065
     Dates: start: 20131002
  86. ATIVAN [Concomitant]
     Active Substance: LORAZEPAM
     Route: 065
     Dates: start: 20180308
  87. ESCITALOPRAM [Concomitant]
     Active Substance: ESCITALOPRAM OXALATE
     Route: 065
     Dates: start: 20190221
  88. PRAVASTATIN [Concomitant]
     Active Substance: PRAVASTATIN
     Route: 065
     Dates: start: 20190321
  89. ACYCLOVIR [Concomitant]
     Active Substance: ACYCLOVIR
  90. IBUPROFEN [Concomitant]
     Active Substance: IBUPROFEN
  91. MEDROL [Concomitant]
     Active Substance: METHYLPREDNISOLONE
  92. PHENERGAN [Concomitant]
     Active Substance: PROMETHAZINE HYDROCHLORIDE
  93. LYRICA [Concomitant]
     Active Substance: PREGABALIN
  94. AMARYL [Concomitant]
     Active Substance: GLIMEPIRIDE
  95. CYMBALTA [Concomitant]
     Active Substance: DULOXETINE HYDROCHLORIDE
  96. VIOXX [Concomitant]
     Active Substance: ROFECOXIB
  97. CLINORIL [Concomitant]
     Active Substance: SULINDAC
  98. RELAFEN [Concomitant]
     Active Substance: NABUMETONE
  99. LODENE [Concomitant]
  100. NAPROSYN [Concomitant]
     Active Substance: NAPROXEN
  101. SOMA [Concomitant]
     Active Substance: CARISOPRODOL
  102. ULTRAM [Concomitant]
     Active Substance: TRAMADOL HYDROCHLORIDE
  103. OXYCODONE [Concomitant]
     Active Substance: OXYCODONE
  104. MAGNESIUM OXIDE [Concomitant]
     Active Substance: MAGNESIUM OXIDE
  105. AUGMENTIN [Concomitant]
     Active Substance: AMOXICILLIN\CLAVULANATE POTASSIUM
  106. VITAMINS [Concomitant]
     Active Substance: VITAMINS
  107. EPIDURAL [Concomitant]
  108. LOVATEX [Concomitant]
  109. UNSPECIFIED INGREDIENT [Concomitant]
     Active Substance: UNSPECIFIED INGREDIENT
  110. KEFLEX [Concomitant]
     Active Substance: CEPHALEXIN
  111. HUMALOG [Concomitant]
     Active Substance: INSULIN LISPRO

REACTIONS (23)
  - Oesophageal carcinoma [Fatal]
  - Fournier^s gangrene [Unknown]
  - Sepsis [Unknown]
  - Osteochondrosis [Unknown]
  - Type 2 diabetes mellitus [Unknown]
  - Intervertebral disc degeneration [Unknown]
  - Hypertension [Unknown]
  - Hypokalaemia [Unknown]
  - Hyponatraemia [Unknown]
  - Anion gap increased [Unknown]
  - Scrotal abscess [Unknown]
  - Perineal abscess [Unknown]
  - Back disorder [Unknown]
  - Obesity [Unknown]
  - Groin abscess [Unknown]
  - Pituitary-dependent Cushing^s syndrome [Unknown]
  - Laryngeal cancer [Unknown]
  - Subcutaneous abscess [Unknown]
  - Asthenia [Unknown]
  - Deep vein thrombosis [Unknown]
  - Cellulitis [Unknown]
  - Genital abscess [Unknown]
  - Anal abscess [Unknown]

NARRATIVE: CASE EVENT DATE: 20140714
